FAERS Safety Report 16228752 (Version 1)
Quarter: 2019Q2

REPORT INFORMATION
  Report Type: Spontaneous
  Country: US (occurrence: US)
  Receive Date: 20190422
  Receipt Date: 20190422
  Transmission Date: 20190711
  Serious: No
  Sender: FDA-Public Use
  Company Number: None

PATIENT
  Age: 68 Year
  Sex: Male
  Weight: 104.4 kg

DRUGS (10)
  1. OTC PROBIOTIC [Concomitant]
  2. PHILIP^S COLON HEALTH [Concomitant]
  3. VITAMIN C [Concomitant]
     Active Substance: ASCORBIC ACID
  4. LISINOPRIL/HCTZ TABS 10/12.5MG GENERIC FOR PRINZIDE [Suspect]
     Active Substance: HYDROCHLOROTHIAZIDE\LISINOPRIL
     Indication: HYPERTENSION
     Dosage: ?          QUANTITY:1 TABLET(S);?
     Route: 048
     Dates: start: 20190324, end: 20190422
  5. MEGA KRILL [Concomitant]
  6. MULTIVITAMIN [Concomitant]
     Active Substance: VITAMINS
  7. ORGANIC WHEAT GRASS [Concomitant]
  8. CALCIUM-MAGNESIUM-ZINC [Concomitant]
  9. ESCITALOPRAM [Concomitant]
     Active Substance: ESCITALOPRAM OXALATE
  10. VITAMIN B3 [Concomitant]
     Active Substance: NIACIN

REACTIONS (4)
  - Abdominal discomfort [None]
  - Malaise [None]
  - Product substitution issue [None]
  - Diarrhoea [None]

NARRATIVE: CASE EVENT DATE: 20190324
